FAERS Safety Report 5339853-1 (Version None)
Quarter: 2007Q2

REPORT INFORMATION
  Report Type: 
  Country: None (occurrence: None)
  Receive Date: 20070529
  Receipt Date: 20070516
  Transmission Date: 20071010
  Serious: Yes (Hospitalization)
  Sender: FDA-Public Use
  Company Number: 163-21880-07041523

PATIENT
  Age: 62 Year
  Sex: Male
  Weight: 75.0249 kg

DRUGS (15)
  1. REVLIMID [Suspect]
     Indication: DRUG USE FOR UNKNOWN INDICATION
     Dosage: 25 MG, DAILY X 21 DAYS OF 28, ORAL
     Route: 048
     Dates: start: 20070312
  2. REVLIMID [Suspect]
     Indication: MULTIPLE MYELOMA
     Dosage: 25 MG, DAILY X 21 DAYS OF 28, ORAL
     Route: 048
     Dates: start: 20070312
  3. ZOMETA [Concomitant]
  4. LEVAQUIN [Concomitant]
  5. TRAZODONE HCL (TRAZODONE) (TABLETS) [Concomitant]
  6. HYDROCODONE-ACETAMINOPHEN (VICODIN) (TABLETS) [Concomitant]
  7. MIRALAX (MACROGOL) (POWDER) [Concomitant]
  8. STOOL SOFTENER (DOCUSATE SODIUM) (CAPSULES) [Concomitant]
  9. CELEXA (CITALOPRAM HYDROBROMIDE) (TABLETS) [Concomitant]
  10. ACTOPLUS MET (TABLETS) [Concomitant]
  11. HYDROCODONE-GG EXPECTORANT (HYDROCODONE) (SYRUP) [Concomitant]
  12. LORTAB [Concomitant]
  13. ADULT ASPIRIN LOW STRENGTH (ACETYLSALICYLIC ACID) (TABLETS) [Concomitant]
  14. ZELNORM (TEGASEROD MALEATE) (TABLETS) [Concomitant]
  15. LISINOPRIL [Concomitant]

REACTIONS (10)
  - CHEST PAIN [None]
  - DEEP VEIN THROMBOSIS [None]
  - DEPRESSED MOOD [None]
  - DIVERTICULUM INTESTINAL HAEMORRHAGIC [None]
  - HAEMATOCRIT DECREASED [None]
  - HAEMOGLOBIN DECREASED [None]
  - PLATELET COUNT ABNORMAL [None]
  - RED BLOOD CELL COUNT DECREASED [None]
  - WEIGHT DECREASED [None]
  - WHITE BLOOD CELL COUNT ABNORMAL [None]
